FAERS Safety Report 14562052 (Version 1)
Quarter: 2018Q1

REPORT INFORMATION
  Report Type: Spontaneous
  Country: US (occurrence: US)
  Receive Date: 20180222
  Receipt Date: 20180222
  Transmission Date: 20180509
  Serious: Yes (Other)
  Sender: FDA-Public Use
  Company Number: US-SA-2018SA033747

PATIENT
  Age: 39 Year
  Sex: Female

DRUGS (4)
  1. ALPRAZOLAM. [Suspect]
     Active Substance: ALPRAZOLAM
     Indication: BACK PAIN
     Dosage: DOSE: DOUBLE HER USUAL DOSE
     Route: 065
  2. OXYCODONE [Suspect]
     Active Substance: OXYCODONE
     Indication: BACK PAIN
     Dosage: DOSE: DOUBLE HER USUAL DOSE
     Route: 065
  3. DIPHENHYDRAMINE. [Suspect]
     Active Substance: DIPHENHYDRAMINE
     Indication: BACK PAIN
     Dosage: COUPLE OF DIPHENHYDRAMINE PILLS, UNKNOWN DOSAGE
     Route: 065
  4. LORAZEPAM. [Suspect]
     Active Substance: LORAZEPAM
     Indication: BACK PAIN
     Dosage: DOSE: DOUBLE HER USUAL DOSE
     Route: 065

REACTIONS (11)
  - Intentional product misuse [Unknown]
  - Tenderness [Unknown]
  - Muscle disorder [Unknown]
  - Unresponsive to stimuli [Unknown]
  - Pain in extremity [Unknown]
  - Prescribed overdose [Unknown]
  - Loss of consciousness [Unknown]
  - Peripheral swelling [Unknown]
  - Paraesthesia [Unknown]
  - Compartment syndrome [Recovering/Resolving]
  - Extra dose administered [Unknown]
